FAERS Safety Report 13939710 (Version 1)
Quarter: 2017Q3

REPORT INFORMATION
  Report Type: Spontaneous
  Country: US (occurrence: US)
  Receive Date: 20170906
  Receipt Date: 20170906
  Transmission Date: 20171127
  Serious: Yes (Death)
  Sender: FDA-Public Use
  Company Number: None

PATIENT
  Age: 74 Year
  Sex: Male
  Weight: 90 kg

DRUGS (11)
  1. DEXAMETHASONE. [Concomitant]
     Active Substance: DEXAMETHASONE
  2. ALLOPURINOL. [Concomitant]
     Active Substance: ALLOPURINOL
  3. ASPIRIN. [Concomitant]
     Active Substance: ASPIRIN
  4. ACYCLOVIR. [Concomitant]
     Active Substance: ACYCLOVIR
  5. ONDANSETRON [Concomitant]
     Active Substance: ONDANSETRON
  6. VYXEOS [Suspect]
     Active Substance: CYTARABINE\DAUNORUBICIN
     Indication: ACUTE LEUKAEMIA
     Dosage: OTHER FREQUENCY:DAYS 1, 3, AND 5;?
     Route: 042
     Dates: start: 20170828, end: 20170901
  7. ATORVASTATIN [Concomitant]
     Active Substance: ATORVASTATIN
  8. AMLODIPINE [Concomitant]
     Active Substance: AMLODIPINE BESYLATE
  9. ACETAMINOPHEN. [Concomitant]
     Active Substance: ACETAMINOPHEN
  10. VYXEOS [Suspect]
     Active Substance: CYTARABINE\DAUNORUBICIN
     Indication: GENE MUTATION
     Dosage: OTHER FREQUENCY:DAYS 1, 3, AND 5;?
     Route: 042
     Dates: start: 20170828, end: 20170901
  11. QUAIFENESIN [Concomitant]

REACTIONS (12)
  - Bradycardia [None]
  - Gastrointestinal infection [None]
  - Metabolic acidosis [None]
  - Dyspnoea [None]
  - Lung infiltration [None]
  - Pulmonary haemorrhage [None]
  - Sepsis [None]
  - Pseudomonas test positive [None]
  - Pancytopenia [None]
  - Pulseless electrical activity [None]
  - Haemoptysis [None]
  - Tachycardia [None]

NARRATIVE: CASE EVENT DATE: 20170902
